FAERS Safety Report 8079328 (Version 3)
Quarter: 2013Q2

REPORT INFORMATION
  Report Type: Report from Study
  Country: BE (occurrence: BE)
  Receive Date: 20110808
  Receipt Date: 20130426
  Transmission Date: 20140414
  Serious: Yes (Life-Threatening, Hospitalization, Other)
  Sender: FDA-Public Use
  Company Number: BE-BIOGENIDEC-2011BI028891

PATIENT
  Age: 33 Year
  Sex: Male

DRUGS (14)
  1. SOLUMEDROL [Concomitant]
  2. LITICAN [Concomitant]
  3. TEMESTA [Concomitant]
  4. TYSABRI [Suspect]
     Indication: RELAPSING-REMITTING MULTIPLE SCLEROSIS
     Route: 042
     Dates: start: 20110509, end: 20110617
  5. METHYLPREDNISOLONE [Concomitant]
     Indication: MULTIPLE SCLEROSIS RELAPSE
  6. CLEXANE [Concomitant]
  7. DUROGESIC [Concomitant]
     Route: 062
  8. FORLAX [Concomitant]
  9. MINIRIN [Concomitant]
  10. MINIRIN [Concomitant]
  11. MINIRIN [Concomitant]
  12. PANTOMED [Concomitant]
  13. RISPERDAL [Concomitant]
  14. SPIRALEXA [Concomitant]

REACTIONS (1)
  - Glioblastoma [Not Recovered/Not Resolved]
